FAERS Safety Report 7803808-5 (Version None)
Quarter: 2011Q4

REPORT INFORMATION
  Report Type: 
  Country: None (occurrence: None)
  Receive Date: 20111010
  Receipt Date: 20110929
  Transmission Date: 20120403
  Serious: Yes (Disabling)
  Sender: FDA-Public Use
  Company Number: FR-ELI_LILLY_AND_COMPANY-FR201109008250

PATIENT
  Sex: Female

DRUGS (12)
  1. BRICANYL [Concomitant]
     Indication: DYSPNOEA
     Dosage: 3 DF, QD
     Route: 055
  2. ATARAX [Concomitant]
     Dosage: 25 MG, QD
     Route: 048
  3. ATROVENT [Concomitant]
     Indication: DYSPNOEA
     Dosage: 3 DF, QD
     Route: 055
  4. XOLAIR [Concomitant]
     Dosage: 300 MG, MONTHLY (1/M)
     Dates: start: 20070101
  5. OMEPRAZOLE [Concomitant]
     Dosage: 20 MG, QD
     Route: 048
  6. METFORMIN HYDROCHLORIDE [Concomitant]
     Dosage: 1000 MG, TID
     Route: 048
  7. ACTONEL [Concomitant]
     Dosage: 35 MG, QD
     Route: 048
  8. SERETIDE [Concomitant]
     Indication: DYSPNOEA
     Dosage: 2 DF, QD
     Route: 055
  9. AMINOPHYLLINE [Concomitant]
     Dosage: 400 MG, BID
     Route: 048
  10. UMULINE [Suspect]
     Indication: TYPE 2 DIABETES MELLITUS
     Dosage: UNK
     Route: 058
     Dates: end: 20100901
  11. PREVISCAN [Concomitant]
     Dosage: 0.5 DF, QD
     Route: 048
  12. PREDNISONE [Concomitant]
     Dosage: 15 MG, QD
     Route: 048

REACTIONS (5)
  - MITRAL VALVE INCOMPETENCE [None]
  - EJECTION FRACTION DECREASED [None]
  - CONGESTIVE CARDIOMYOPATHY [None]
  - AORTIC VALVE INCOMPETENCE [None]
  - TRICUSPID VALVE INCOMPETENCE [None]
